FAERS Safety Report 5505787-2 (Version None)
Quarter: 2007Q4

REPORT INFORMATION
  Report Type: 
  Country: None (occurrence: None)
  Receive Date: 20071102
  Receipt Date: 20071029
  Transmission Date: 20080405
  Serious: Yes (Other)
  Sender: FDA-Public Use
  Company Number: US-ROXANE LABORATORIES, INC-2007-BP-23611RO

PATIENT
  Sex: Male

DRUGS (3)
  1. PREDNISONE TAB [Suspect]
  2. SAIZEN [Suspect]
     Indication: GROWTH HORMONE DEFICIENCY
  3. CORTEF [Suspect]

REACTIONS (1)
  - SQUAMOUS CELL CARCINOMA [None]
